FAERS Safety Report 7098453-6 (Version None)
Quarter: 2010Q4

REPORT INFORMATION
  Report Type: 
  Country: None (occurrence: None)
  Receive Date: 20101104
  Receipt Date: 20101026
  Transmission Date: 20110411
  Serious: Yes (Death, Life-Threatening)
  Sender: FDA-Public Use
  Company Number: OMPQ-NO-1010S-0941

PATIENT
  Age: 63 Year
  Sex: Male

DRUGS (9)
  1. OMNIPAQUE 140 [Suspect]
     Indication: HEPATIC NEOPLASM
     Dosage: 130 ML, SINGLE DOSE, I.V.
     Route: 042
  2. PERINDOPRIL [Concomitant]
  3. ACETYLSALICYLATE LYSINE (KARDEGIC) [Concomitant]
  4. PLAVIX [Concomitant]
  5. CRESTOR [Concomitant]
  6. METFORMIN HCL [Concomitant]
  7. REPAGLINIDE (NOVONORM) [Concomitant]
  8. GLYCERYL TRINITRATE (NATISPRAY) [Concomitant]
  9. GLYCERYL TRINITRATE (NITRIDERM) [Concomitant]

REACTIONS (11)
  - ACUTE CORONARY SYNDROME [None]
  - ACUTE PULMONARY OEDEMA [None]
  - BUNDLE BRANCH BLOCK LEFT [None]
  - CARDIO-RESPIRATORY ARREST [None]
  - CARDIOGENIC SHOCK [None]
  - ELECTROCARDIOGRAM ST SEGMENT DEPRESSION [None]
  - MITRAL VALVE INCOMPETENCE [None]
  - THROMBOSIS IN DEVICE [None]
  - TRICUSPID VALVE INCOMPETENCE [None]
  - VENTRICULAR FIBRILLATION [None]
  - VENTRICULAR TACHYCARDIA [None]
